FAERS Safety Report 19774846 (Version 1)
Quarter: 2021Q3

REPORT INFORMATION
  Report Type: Report from Study
  Country: US (occurrence: US)
  Receive Date: 20210901
  Receipt Date: 20210901
  Transmission Date: 20211014
  Serious: Yes (Other)
  Sender: FDA-Public Use
  Company Number: NVSC2021US193021

PATIENT
  Sex: Female

DRUGS (1)
  1. GILENYA [Suspect]
     Active Substance: FINGOLIMOD HYDROCHLORIDE
     Indication: PRODUCT USED FOR UNKNOWN INDICATION
     Dosage: UNK
     Route: 065

REACTIONS (6)
  - T-lymphocyte count decreased [Unknown]
  - Paranoia [Unknown]
  - Pollakiuria [Unknown]
  - Immunodeficiency [Unknown]
  - Multiple sclerosis [Unknown]
  - Diarrhoea [Unknown]
